FAERS Safety Report 11939808 (Version 2)
Quarter: 2016Q1

REPORT INFORMATION
  Report Type: Spontaneous
  Country: US (occurrence: US)
  Receive Date: 20160122
  Receipt Date: 20160202
  Transmission Date: 20160526
  Serious: Yes (Other)
  Sender: FDA-Public Use
  Company Number: US-JNJFOC-20160113565

PATIENT
  Sex: Male
  Weight: 88.45 kg

DRUGS (4)
  1. ULTRAM ER [Suspect]
     Active Substance: TRAMADOL HYDROCHLORIDE
     Indication: ARTHROPATHY
     Dosage: ONCE A DAY AT NIGHT
     Route: 048
     Dates: start: 2014
  2. TRAMADOL ER [Suspect]
     Active Substance: TRAMADOL HYDROCHLORIDE
     Indication: ARTHROPATHY
     Dosage: ONCE A DAY AT NIGHT
     Route: 048
     Dates: start: 2014, end: 2014
  3. GABAPENTIN. [Concomitant]
     Active Substance: GABAPENTIN
     Indication: PARAESTHESIA
     Dosage: THRICE A DAY
     Route: 048
     Dates: start: 2009
  4. ULTRAM ER [Suspect]
     Active Substance: TRAMADOL HYDROCHLORIDE
     Indication: ARTHROPATHY
     Dosage: ONCE A DAY AT NIGHT
     Route: 048
     Dates: start: 1990, end: 2014

REACTIONS (6)
  - Adverse drug reaction [Recovered/Resolved]
  - Pruritus [Recovered/Resolved]
  - Prostate cancer [Unknown]
  - Drug dose omission [Unknown]
  - Bladder cancer [Unknown]
  - Back disorder [Recovered/Resolved]

NARRATIVE: CASE EVENT DATE: 2012
